FAERS Safety Report 7341175-4 (Version None)
Quarter: 2011Q1

REPORT INFORMATION
  Report Type: 
  Country: None (occurrence: None)
  Receive Date: 20110309
  Receipt Date: 20110302
  Transmission Date: 20110831
  Serious: Yes (Hospitalization)
  Sender: FDA-Public Use
  Company Number: B0703055A

PATIENT
  Age: 44 Year
  Sex: Female
  Weight: 64.2 kg

DRUGS (3)
  1. LAMIVUDINE-HIV [Concomitant]
  2. ABACAVIR [Suspect]
     Dosage: 600MG PER DAY
     Route: 048
     Dates: start: 20061001, end: 20110215
  3. EFAVIRENZ [Concomitant]

REACTIONS (1)
  - CEREBROVASCULAR ACCIDENT [None]
